FAERS Safety Report 15624411 (Version 2)
Quarter: 2018Q4

REPORT INFORMATION
  Report Type: Report from Study
  Country: None (occurrence: CH)
  Receive Date: 20181116
  Receipt Date: 20181224
  Transmission Date: 20190205
  Serious: Yes (Hospitalization)
  Sender: FDA-Public Use
  Company Number: CH-ABBVIE-18S-151-2551160-00

PATIENT
  Age: 76 Year
  Sex: Male

DRUGS (5)
  1. DUODOPA [Suspect]
     Active Substance: CARBIDOPA\LEVODOPA
     Dosage: MD 8ML, CR DAY 3.1ML/H, CR NIGHT 2.7ML/H, ED 1.5ML, 24H THERAPY
     Route: 050
     Dates: start: 20170804, end: 20180420
  2. DUODOPA [Suspect]
     Active Substance: CARBIDOPA\LEVODOPA
     Dosage: MD 8ML, CR DAY 3ML/H, CR NIGHT 2.8ML/H, ED 1.5ML, 24H THERAPY
     Route: 050
     Dates: start: 20181108
  3. DUODOPA [Suspect]
     Active Substance: CARBIDOPA\LEVODOPA
     Indication: PARKINSON^S DISEASE
     Route: 050
     Dates: start: 20141103, end: 20170804
  4. DUODOPA [Suspect]
     Active Substance: CARBIDOPA\LEVODOPA
     Dosage: MD 8ML, CR DAY 3ML/H, CR NIGHT 2.8ML/H, ED 1.5ML, 24H THERAPY
     Route: 050
     Dates: start: 20180420, end: 20181108
  5. DUODOPA [Suspect]
     Active Substance: CARBIDOPA\LEVODOPA
     Dosage: MD UNKNOWN, CR DAY 3ML/H, CR NIGHT 2.8ML/H, ED 1.5ML, 24H THERAPY
     Route: 050
     Dates: start: 20181108, end: 20181108

REACTIONS (5)
  - Hallucination [Recovering/Resolving]
  - Medication error [Recovered/Resolved]
  - Delirium [Unknown]
  - Aggression [Recovering/Resolving]
  - Urinary tract infection [Recovering/Resolving]

NARRATIVE: CASE EVENT DATE: 20181107
